FAERS Safety Report 5649002-8 (Version None)
Quarter: 2008Q1

REPORT INFORMATION
  Report Type: 
  Country: None (occurrence: None)
  Receive Date: 20080131
  Receipt Date: 20071204
  Transmission Date: 20080703
  Serious: No
  Sender: FDA-Public Use
  Company Number: US200712000985

PATIENT
  Age: 61 Year
  Sex: Female
  Weight: 72.1 kg

DRUGS (7)
  1. BYETTA [Suspect]
     Indication: TYPE 2 DIABETES MELLITUS
     Dosage: 5 UG,2/D, SUBCUTANEOUS; 10 UG, 2/D2 SUBCUTANCEOUS
     Route: 058
     Dates: start: 20060401, end: 20060601
  2. BYETTA [Suspect]
     Indication: TYPE 2 DIABETES MELLITUS
     Dosage: 5 UG,2/D, SUBCUTANEOUS; 10 UG, 2/D2 SUBCUTANCEOUS
     Route: 058
     Dates: start: 20060601
  3. GLUCOPHAGE /USA/ (METFORMIN HYDROCHLORIDE) [Concomitant]
  4. AMARYL [Concomitant]
  5. CIPROFLOXACIN [Concomitant]
  6. ... [Concomitant]
  7. .... [Concomitant]

REACTIONS (4)
  - NEPHROLITHIASIS [None]
  - TRICHORRHEXIS [None]
  - URINARY TRACT INFECTION [None]
  - WEIGHT DECREASED [None]
